FAERS Safety Report 6232503-1 (Version None)
Quarter: 2009Q2

REPORT INFORMATION
  Report Type: 
  Country: None (occurrence: None)
  Receive Date: 20090617
  Receipt Date: 20090605
  Transmission Date: 20091009
  Serious: Yes (Other)
  Sender: FDA-Public Use
  Company Number: JP-BAYER-200911672BYL

PATIENT
  Age: 80 Year
  Sex: Male
  Weight: 38 kg

DRUGS (6)
  1. AVELOX [Suspect]
     Indication: PNEUMONIA BACTERIAL
     Dosage: TOTAL DAILY DOSE: 400 MG  UNIT DOSE: 400 MG
     Route: 050
     Dates: start: 20090428, end: 20090504
  2. ZANTAC [Concomitant]
     Indication: GASTRIC ULCER
     Dosage: TOTAL DAILY DOSE: 300 MG
     Route: 048
     Dates: start: 20090319, end: 20090516
  3. VASOLAN [Concomitant]
     Indication: SUPRAVENTRICULAR EXTRASYSTOLES
     Dosage: TOTAL DAILY DOSE: 80 MG
     Route: 048
     Dates: start: 20090323, end: 20090516
  4. LASIX [Concomitant]
     Indication: ACUTE RESPIRATORY FAILURE
     Dosage: TOTAL DAILY DOSE: 0.5 G
     Route: 048
     Dates: start: 20090427, end: 20090504
  5. ALDACTONE [Concomitant]
     Indication: ACUTE RESPIRATORY FAILURE
     Dosage: TOTAL DAILY DOSE: 0.25 G
     Route: 050
     Dates: start: 20090427, end: 20090504
  6. SEROQUEL [Concomitant]
     Indication: DELIRIUM
     Dosage: TOTAL DAILY DOSE: 12.5 MG
     Route: 050
     Dates: start: 20090313, end: 20090512

REACTIONS (2)
  - HYPOGLYCAEMIA [None]
  - TREMOR [None]
